FAERS Safety Report 4553956-0 (Version None)
Quarter: 2005Q1

REPORT INFORMATION
  Report Type: 
  Country: None (occurrence: None)
  Receive Date: 20050118
  Receipt Date: 20050104
  Transmission Date: 20050727
  Serious: Yes (Death)
  Sender: FDA-Public Use
  Company Number: IT-JNJFOC-20050101506

PATIENT

DRUGS (3)
  1. INFLIXIMAB [Suspect]
     Indication: GRAFT VERSUS HOST DISEASE
     Dosage: AT LEAST 2 COURSES WITH A RANGE OF 2-8 COURSES
     Route: 042
  2. STEROIDS [Concomitant]
  3. STEROIDS [Concomitant]
     Indication: GRAFT VERSUS HOST DISEASE

REACTIONS (1)
  - SYSTEMIC CANDIDA [None]
